FAERS Safety Report 12552296 (Version 2)
Quarter: 2016Q3

REPORT INFORMATION
  Report Type: Spontaneous
  Country: US (occurrence: US)
  Receive Date: 20160713
  Receipt Date: 20160802
  Transmission Date: 20161109
  Serious: No
  Sender: FDA-Public Use
  Company Number: US-GLAXOSMITHKLINE-US2016GSK093099

PATIENT
  Sex: Female

DRUGS (1)
  1. TANZEUM [Suspect]
     Active Substance: ALBIGLUTIDE
     Indication: PRODUCT USED FOR UNKNOWN INDICATION
     Dosage: 50 MG, U

REACTIONS (5)
  - Gastric disorder [Unknown]
  - Drug ineffective [Unknown]
  - Feeling abnormal [Unknown]
  - Abdominal pain [Recovered/Resolved]
  - Gastrooesophageal reflux disease [Unknown]
